FAERS Safety Report 15729806 (Version 1)
Quarter: 2018Q4

REPORT INFORMATION
  Report Type: Spontaneous
  Country: US (occurrence: US)
  Receive Date: 20181216
  Receipt Date: 20181216
  Transmission Date: 20190205
  Serious: No
  Sender: FDA-Public Use
  Company Number: None

PATIENT
  Age: 71 Year
  Sex: Female
  Weight: 72 kg

DRUGS (6)
  1. CARTIA [Concomitant]
  2. PRAVASTATIN. [Concomitant]
     Active Substance: PRAVASTATIN
  3. TYLENOL [Concomitant]
     Active Substance: ACETAMINOPHEN
  4. AMIODARONE HCL [Suspect]
     Active Substance: AMIODARONE HYDROCHLORIDE
     Indication: HEART RATE IRREGULAR
     Dosage: ?          QUANTITY:1 TABLET(S);?
     Route: 048
     Dates: start: 20181207, end: 20181215
  5. COUMADIN [Concomitant]
     Active Substance: WARFARIN SODIUM
  6. LOSARTAN. [Concomitant]
     Active Substance: LOSARTAN

REACTIONS (3)
  - Dyspnoea [None]
  - Wheezing [None]
  - Insomnia [None]

NARRATIVE: CASE EVENT DATE: 20181209
